FAERS Safety Report 19940777 (Version 2)
Quarter: 2021Q4

REPORT INFORMATION
  Report Type: Other
  Country: MX (occurrence: None)
  Receive Date: 20211011
  Receipt Date: 20211116
  Transmission Date: 20220303
  Serious: Yes (Other)
  Sender: FDA-Public Use
  Company Number: MX-ROCHE-2930421

PATIENT
  Age: 65 Year
  Sex: Female
  Weight: 105 kg

DRUGS (10)
  1. HERCEPTIN [Suspect]
     Active Substance: TRASTUZUMAB
     Indication: Breast cancer
     Route: 042
     Dates: start: 20210301, end: 202108
  2. PERJETA [Suspect]
     Active Substance: PERTUZUMAB
     Indication: Breast cancer
     Route: 042
     Dates: start: 202103, end: 202108
  3. XELODA [Suspect]
     Active Substance: CAPECITABINE
     Indication: Breast cancer
     Route: 048
  4. INSULIN NOS [Concomitant]
     Active Substance: INSULIN NOS
     Indication: Diabetes mellitus
     Dosage: 40 (UNITS NOT PROVIDED) INJECTED IN THE MORNING AND 20 (UNITS NOT PROVIDED) INJECTED AT NIGHT
  5. PIOGLITAZONE [Concomitant]
     Active Substance: PIOGLITAZONE
     Indication: Diabetes mellitus
     Dosage: 1 TABLET EVERY 24 HOURS
     Route: 048
  6. LINAGLIPTIN [Concomitant]
     Active Substance: LINAGLIPTIN
     Indication: Diabetes mellitus
     Dosage: 1 TABLET EVERY 24 HOURS
     Route: 048
  7. LOSARTAN [Concomitant]
     Active Substance: LOSARTAN
     Indication: Hypertension
     Dosage: ONE TABLET IN THE MORNING AND ONE TABLET AT NIGHT
     Route: 048
     Dates: start: 1991
  8. METOPROLOL [Concomitant]
     Active Substance: METOPROLOL
     Indication: Hypertension
     Dosage: ONE TABLET IN THE MORNING AND ONE TABLET AT NIGHT
     Route: 048
     Dates: start: 1991
  9. FELODIPINE [Concomitant]
     Active Substance: FELODIPINE
     Indication: Hypertension
     Dosage: ONE TABLET IN THE MORNING AND ONE TABLET AT NIGHT
     Route: 048
     Dates: start: 1991
  10. LOPERAMIDE [Concomitant]
     Active Substance: LOPERAMIDE
     Indication: Diarrhoea
     Dosage: WHEN NECESSARY
     Route: 048

REACTIONS (2)
  - Cardiac disorder [Not Recovered/Not Resolved]
  - Diabetes mellitus inadequate control [Recovered/Resolved]

NARRATIVE: CASE EVENT DATE: 20210801
